FAERS Safety Report 18736217 (Version 3)
Quarter: 2021Q1

REPORT INFORMATION
  Report Type: Spontaneous
  Country: DE (occurrence: DE)
  Receive Date: 20210113
  Receipt Date: 20210225
  Transmission Date: 20210419
  Serious: Yes (Death, Hospitalization)
  Sender: FDA-Public Use
  Company Number: DE-JNJFOC-20210110794

PATIENT
  Age: 73 Year
  Sex: Male

DRUGS (13)
  1. ERLEADA [Suspect]
     Active Substance: APALUTAMIDE
     Route: 048
     Dates: start: 20201125, end: 20201216
  2. OMEPRAZOLE. [Concomitant]
     Active Substance: OMEPRAZOLE
     Dosage: 1?0?0?0
  3. EPLERENONE. [Concomitant]
     Active Substance: EPLERENONE
     Dosage: 1?0?0?0
  4. TORASEMIDE [Concomitant]
     Active Substance: TORSEMIDE
     Dosage: 1?1?1/2?0
  5. AMIODARONE [Concomitant]
     Active Substance: AMIODARONE
     Dosage: 1?0?0?0
  6. ERLEADA [Suspect]
     Active Substance: APALUTAMIDE
     Indication: PROSTATE CANCER METASTATIC
     Route: 048
     Dates: start: 202011, end: 20201116
  7. BUSCOPAN [Concomitant]
     Active Substance: BUTYLSCOPOLAMINE BROMIDE
     Dosage: 500MG IF NEEDED
  8. FIRMAGON [Suspect]
     Active Substance: DEGARELIX ACETATE
     Indication: PROSTATE CANCER METASTATIC
     Route: 065
     Dates: start: 202011
  9. SPIRONOLACTON [Concomitant]
     Active Substance: SPIRONOLACTONE
     Dosage: 1/2?0?0?0
  10. ENTRESTO [Concomitant]
     Active Substance: SACUBITRIL\VALSARTAN
     Dosage: 24MG/26MG 1?0?1?0
  11. BISOPROLOL [Concomitant]
     Active Substance: BISOPROLOL
     Dosage: 1?0?1?0
  12. ATORVASTATIN [Concomitant]
     Active Substance: ATORVASTATIN
     Dosage: 0?0?1?0
  13. RIVAROXABAN [Concomitant]
     Active Substance: RIVAROXABAN
     Dosage: 1?0?0?0

REACTIONS (1)
  - Stevens-Johnson syndrome [Fatal]

NARRATIVE: CASE EVENT DATE: 20201116
